FAERS Safety Report 17039607 (Version 2)
Quarter: 2019Q4

REPORT INFORMATION
  Report Type: Report from Study
  Country: NL (occurrence: NL)
  Receive Date: 20191115
  Receipt Date: 20191202
  Transmission Date: 20200122
  Serious: Yes (Life-Threatening)
  Sender: FDA-Public Use
  Company Number: NL-EXELIXIS-XL18419025189

PATIENT
  Age: 70 Year
  Sex: Male
  Weight: 49 kg

DRUGS (7)
  1. LEVOMENTHOL;MELALEUCA LEUCADENDRA ESSENTIAL OIL;MELALEUCA VIRIDIFLORA [Concomitant]
  2. INDAPAMIDE. [Concomitant]
     Active Substance: INDAPAMIDE
  3. LATANOPROST. [Concomitant]
     Active Substance: LATANOPROST
  4. FUSIDINEZUUR [Concomitant]
  5. GLICLAZIDE [Concomitant]
     Active Substance: GLICLAZIDE
  6. BARNIDIPINE [Concomitant]
     Active Substance: BARNIDIPINE
  7. XL184 [Suspect]
     Active Substance: CABOZANTINIB
     Indication: SALIVARY GLAND CANCER
     Dosage: 40 MG, QD
     Route: 048
     Dates: start: 2019, end: 20191024

REACTIONS (1)
  - Skin ulcer [Recovering/Resolving]

NARRATIVE: CASE EVENT DATE: 20191024
